FAERS Safety Report 4594778-4 (Version None)
Quarter: 2005Q1

REPORT INFORMATION
  Report Type: 
  Country: None (occurrence: None)
  Receive Date: 20050301
  Receipt Date: 20050210
  Transmission Date: 20050727
  Serious: Yes (Other)
  Sender: FDA-Public Use
  Company Number: PHBS2005JP02269

PATIENT
  Age: 32 Year
  Sex: Male

DRUGS (5)
  1. CYCLOSPORINE [Suspect]
     Indication: STEM CELL TRANSPLANT
     Route: 065
  2. CYTARABINE [Concomitant]
     Dosage: 8 G/M2/D
  3. CYCLOPHOSPHAMIDE [Concomitant]
     Dosage: 120 MG/M2/DAY
  4. RADIATION THERAPY [Concomitant]
     Dosage: 1200 CGY
  5. TACROLIMUS [Suspect]

REACTIONS (22)
  - BLOOD ALKALINE PHOSPHATASE INCREASED [None]
  - BLOOD CREATINE PHOSPHOKINASE INCREASED [None]
  - BLOOD LACTATE DEHYDROGENASE INCREASED [None]
  - DELIRIUM [None]
  - FEBRILE NEUTROPENIA [None]
  - FLUID RETENTION [None]
  - GRAFT VERSUS HOST DISEASE [None]
  - HAEMORRHAGE [None]
  - HYPERTENSION [None]
  - INFARCTION [None]
  - INFECTION [None]
  - MELAENA [None]
  - MUSCLE SPASMS [None]
  - MUSCULOSKELETAL DISCOMFORT [None]
  - OEDEMA [None]
  - PAIN [None]
  - PAIN IN EXTREMITY [None]
  - PARAESTHESIA [None]
  - PRURITUS [None]
  - RASH [None]
  - REFLEXES ABNORMAL [None]
  - WEIGHT INCREASED [None]
